FAERS Safety Report 7000698-8 (Version None)
Quarter: 2010Q3

REPORT INFORMATION
  Report Type: 
  Country: None (occurrence: None)
  Receive Date: 20100920
  Receipt Date: 20100104
  Transmission Date: 20110219
  Serious: No
  Sender: FDA-Public Use
  Company Number: US-ASTRAZENECA-2009SE13245

PATIENT
  Age: 508 Month
  Sex: Female
  Weight: 117.9 kg

DRUGS (5)
  1. SEROQUEL [Suspect]
     Indication: BIPOLAR I DISORDER
     Route: 048
     Dates: start: 20030501, end: 20090501
  2. SEROQUEL [Suspect]
     Indication: BIPOLAR DISORDER
     Route: 048
     Dates: start: 20030501, end: 20090501
  3. SEROQUEL [Suspect]
     Indication: CONVULSION
     Route: 048
     Dates: start: 20030501, end: 20090501
  4. ABILIFY [Concomitant]
     Dosage: DOSAGE VARIES
     Dates: start: 19970101
  5. RISPERDAL [Concomitant]
     Dosage: DOSAGE VARIES
     Dates: start: 19970101

REACTIONS (3)
  - HYPERTENSION [None]
  - OBESITY [None]
  - TYPE 2 DIABETES MELLITUS [None]
